FAERS Safety Report 5291295-3 (Version None)
Quarter: 2007Q2

REPORT INFORMATION
  Report Type: 
  Country: None (occurrence: None)
  Receive Date: 20070409
  Receipt Date: 20070328
  Transmission Date: 20071010
  Serious: Yes (Other)
  Sender: FDA-Public Use
  Company Number: DE-PFIZER INC-2007025604

PATIENT
  Sex: Female
  Weight: 70 kg

DRUGS (9)
  1. LYRICA [Suspect]
     Indication: NEUROPATHY PERIPHERAL
     Dosage: DAILY DOSE:75MG
     Route: 048
  2. LISODURA [Concomitant]
  3. TAMOXIFEN CITRATE [Concomitant]
  4. ISOSORBIDE MONONITRATE [Concomitant]
  5. IBUBETA [Concomitant]
  6. TRIAMTERENE [Concomitant]
  7. PROMETHAZINE [Concomitant]
     Route: 048
  8. ACETYLSALICYLIC ACID SRT [Concomitant]
  9. BROMAZEPAM [Concomitant]

REACTIONS (1)
  - TRANSIENT ISCHAEMIC ATTACK [None]
